FAERS Safety Report 7100894-5 (Version None)
Quarter: 2010Q4

REPORT INFORMATION
  Report Type: 
  Country: None (occurrence: None)
  Receive Date: 20101113
  Receipt Date: 20100326
  Transmission Date: 20110411
  Serious: No
  Sender: FDA-Public Use
  Company Number: US-ALLERGAN-1004077US

PATIENT
  Age: 65 Year
  Sex: Female
  Weight: 58.05 kg

DRUGS (1)
  1. BOTOX COSMETIC [Suspect]
     Indication: SKIN WRINKLING
     Dosage: 46 UNITS, UNK
     Route: 030
     Dates: start: 20100309, end: 20100309

REACTIONS (2)
  - FACIAL PARESIS [None]
  - SWELLING FACE [None]
